FAERS Safety Report 6124543-8 (Version None)
Quarter: 2009Q1

REPORT INFORMATION
  Report Type: 
  Country: None (occurrence: None)
  Receive Date: 20090317
  Receipt Date: 20090317
  Transmission Date: 20090719
  Serious: No
  Sender: FDA-Public Use
  Company Number: None

PATIENT
  Sex: Female
  Weight: 72.5755 kg

DRUGS (1)
  1. CHANTIX [Suspect]

REACTIONS (9)
  - CONDITION AGGRAVATED [None]
  - CONVULSION [None]
  - DRUG INTERACTION [None]
  - EMOTIONAL DISORDER [None]
  - GASTROOESOPHAGEAL REFLUX DISEASE [None]
  - GENERAL PHYSICAL CONDITION ABNORMAL [None]
  - INCONTINENCE [None]
  - MEDICAL DEVICE COMPLICATION [None]
  - NERVOUS SYSTEM DISORDER [None]
